FAERS Safety Report 21598873 (Version 1)
Quarter: 2022Q4

REPORT INFORMATION
  Report Type: Spontaneous
  Country: US (occurrence: US)
  Receive Date: 20221115
  Receipt Date: 20221115
  Transmission Date: 20230113
  Serious: No
  Sender: FDA-Public Use
  Company Number: US-SA-SAC20221111001700

PATIENT
  Sex: Female
  Weight: 12 kg

DRUGS (3)
  1. DUPIXENT [Suspect]
     Active Substance: DUPILUMAB
     Indication: Product used for unknown indication
     Dosage: 200 MG, Q4W
     Route: 058
  2. DESONIDE [Concomitant]
     Active Substance: DESONIDE
     Dosage: UNK
  3. HYDROXYZINE HYDROCHLORIDE [Concomitant]
     Active Substance: HYDROXYZINE HYDROCHLORIDE
     Indication: Pruritus
     Dosage: UNK

REACTIONS (2)
  - Ocular hyperaemia [Unknown]
  - Eye pruritus [Unknown]
